FAERS Safety Report 6171532-3 (Version None)
Quarter: 2009Q2

REPORT INFORMATION
  Report Type: 
  Country: None (occurrence: None)
  Receive Date: 20090429
  Receipt Date: 20090417
  Transmission Date: 20091009
  Serious: Yes (Other)
  Sender: FDA-Public Use
  Company Number: US-PFIZER INC-2009201735

PATIENT
  Sex: Female
  Weight: 113.39 kg

DRUGS (14)
  1. REVATIO [Suspect]
     Indication: PULMONARY HYPERTENSION
     Dosage: UNK
     Dates: start: 20090301
  2. ICAPS [Concomitant]
     Dosage: UNK
  3. TRACLEER [Concomitant]
     Dosage: UNK
  4. LASIX [Concomitant]
     Dosage: UNK
  5. NEURONTIN [Concomitant]
     Dosage: UNK
  6. LOPRESSOR [Concomitant]
     Dosage: UNK
  7. PROTONIX [Concomitant]
     Dosage: UNK
  8. CELEBREX [Concomitant]
     Dosage: UNK
  9. ASTELIN [Concomitant]
     Dosage: UNK
  10. RHINOCORT [Concomitant]
     Dosage: UNK
  11. WARFARIN [Concomitant]
     Dosage: UNK
  12. CRESTOR [Concomitant]
     Dosage: UNK
  13. FEXOFENADINE [Concomitant]
     Dosage: UNK
  14. MOMETASONE [Concomitant]
     Dosage: UNK

REACTIONS (1)
  - VERTIGO [None]
